FAERS Safety Report 7599436 (Version 3)
Quarter: 2013Q4

REPORT INFORMATION
  Report Type: Spontaneous
  Country: US (occurrence: None)
  Receive Date: 20100909
  Receipt Date: 20131119
  Transmission Date: 20140711
  Serious: Yes (Other)
  Sender: FDA-Public Use
  Company Number: 20100402

PATIENT
  Age: 59 Year
  Sex: Male

DRUGS (15)
  1. METHYLENE BLUE [Suspect]
     Dosage: 700 MG INTRAVENOUS
     Route: 042
  2. RINGER^S LACTATE SOLUTION [Concomitant]
  3. SUCCINYLCHOLINE [Concomitant]
  4. VECURONIUM BROMIDE [Concomitant]
  5. NITROUS OXIDE [Concomitant]
  6. SEVOFLURANE [Concomitant]
  7. RABEPRAZOLE [Concomitant]
  8. GLYBURIDE [Concomitant]
  9. METFORMIN [Concomitant]
  10. VERAPAMIL [Concomitant]
  11. FUROSEMIDE [Concomitant]
  12. POTASSIUM [Concomitant]
  13. SIMVASTATIN [Concomitant]
  14. PROPOFOL [Concomitant]
  15. PAROXETINE [Concomitant]

REACTIONS (7)
  - Confusion postoperative [None]
  - Aphasia [None]
  - Speech disorder [None]
  - Disorientation [None]
  - Toxicity to various agents [None]
  - Serotonin syndrome [None]
  - Drug interaction [None]
